FAERS Safety Report 10084618 (Version 1)
Quarter: 2014Q2

REPORT INFORMATION
  Report Type: Spontaneous
  Country: BR (occurrence: BR)
  Receive Date: 20140417
  Receipt Date: 20140417
  Transmission Date: 20141212
  Serious: Yes (Other)
  Sender: FDA-Public Use
  Company Number: BR-PFIZER INC-2014101897

PATIENT
  Age: 69 Year
  Sex: Female
  Weight: 105 kg

DRUGS (2)
  1. XALATAN [Suspect]
     Indication: INTRAOCULAR PRESSURE INCREASED
     Dosage: 1 DROP IN EACH EYE (3 UG) DAILY
     Route: 047
     Dates: start: 20110630
  2. XALATAN [Suspect]
     Indication: GLAUCOMA

REACTIONS (1)
  - Cataract [Unknown]
